FAERS Safety Report 7487233-5 (Version None)
Quarter: 2011Q2

REPORT INFORMATION
  Report Type: 
  Country: None (occurrence: None)
  Receive Date: 20110518
  Receipt Date: 20110420
  Transmission Date: 20111010
  Serious: Yes (Hospitalization, Other)
  Sender: FDA-Public Use
  Company Number: US-BAYER-201041584NA

PATIENT
  Age: 27 Year
  Sex: Female
  Weight: 42 kg

DRUGS (29)
  1. YASMIN [Suspect]
     Indication: CONTRACEPTION
     Dosage: UNK
     Route: 048
     Dates: start: 20000101
  2. POTASSIUM [Concomitant]
     Dates: start: 20000101
  3. IMITREX [Concomitant]
     Dates: start: 20010101
  4. PHENERGAN HCL [Concomitant]
     Dosage: 25 MG, PRN
  5. CARAFATE [Concomitant]
     Indication: GASTRITIS
     Route: 048
  6. PREVACID [Concomitant]
     Dosage: 15 MG, BID
     Route: 048
  7. CLINDEX [Concomitant]
     Indication: ABDOMINAL RIGIDITY
  8. CLINDEX [Concomitant]
     Indication: IRRITABLE BOWEL SYNDROME
  9. YASMIN [Suspect]
     Indication: UNEVALUABLE EVENT
  10. YASMIN [Suspect]
     Indication: ACNE
  11. CLARITIN [Concomitant]
     Indication: MULTIPLE ALLERGIES
     Dosage: 1 DF QD
     Dates: start: 19960101
  12. ROBINUL [Concomitant]
     Indication: ABDOMINAL PAIN
     Dates: start: 20010101, end: 20030101
  13. PROVENTIL [Concomitant]
  14. COLAZAL [Concomitant]
     Indication: COLITIS ULCERATIVE
     Dosage: MUSCLE PAIN/SPASMS
     Dates: start: 20000101, end: 20010101
  15. PHENERGAN HCL [Concomitant]
     Indication: NAUSEA
     Dates: start: 20000101
  16. PREDNISONE [Concomitant]
     Indication: PAIN
     Dosage: UNK
     Dates: start: 20020522
  17. LEVSIN [Concomitant]
     Dates: start: 20010101
  18. NU-IRON [Concomitant]
     Indication: MEDICAL DIET
     Dosage: 150 MG, BID
  19. NAPROXEN (ALEVE) [Concomitant]
     Dates: start: 20000101
  20. BENTYL [Concomitant]
     Indication: COLITIS ULCERATIVE
     Dates: start: 20000101
  21. BENTYL [Concomitant]
     Indication: PANCREATITIS CHRONIC
  22. ROBINUL [Concomitant]
     Indication: MUSCLE SPASMS
  23. LIBRAX [Concomitant]
     Dosage: UNK UNK, PRN
  24. CLINDEX [Concomitant]
     Indication: GASTRIC ULCER
  25. FLEXERIL [Concomitant]
     Indication: MYALGIA
     Dates: start: 20030101
  26. PROVENTIL-HFA [Concomitant]
     Indication: ASTHMA
     Dates: start: 20000101
  27. PREDNISONE [Concomitant]
     Indication: INFLAMMATION
     Dates: start: 20000101, end: 20010101
  28. ASACOL [Concomitant]
     Indication: COLITIS ULCERATIVE
     Dates: start: 20010101
  29. FLEXERIL [Concomitant]
     Indication: MUSCLE SPASMS
     Dates: start: 19900101, end: 19930101

REACTIONS (11)
  - GALLBLADDER DISORDER [None]
  - VOMITING [None]
  - PANCREATITIS CHRONIC [None]
  - CHOLECYSTITIS CHRONIC [None]
  - PAIN [None]
  - ABDOMINAL PAIN UPPER [None]
  - BACK PAIN [None]
  - ABDOMINAL PAIN LOWER [None]
  - NAUSEA [None]
  - PYREXIA [None]
  - BILIARY COLIC [None]
